FAERS Safety Report 15531275 (Version 2)
Quarter: 2019Q1

REPORT INFORMATION
  Report Type: Spontaneous
  Country: US (occurrence: US)
  Receive Date: 20181019
  Receipt Date: 20190115
  Transmission Date: 20190417
  Serious: No
  Sender: FDA-Public Use
  Company Number: US-ASTRAZENECA-2018SF32040

PATIENT
  Age: 29 Year
  Sex: Female
  Weight: 59.9 kg

DRUGS (4)
  1. ABILIFY [Concomitant]
     Active Substance: ARIPIPRAZOLE
     Indication: CRYING
     Dates: start: 2006, end: 2006
  2. QUETIAPINE. [Suspect]
     Active Substance: QUETIAPINE
     Indication: INSOMNIA
     Dosage: GENERIC
     Route: 048
  3. QUETIAPINE. [Suspect]
     Active Substance: QUETIAPINE
     Indication: INSOMNIA
     Route: 048
  4. XANAX [Concomitant]
     Active Substance: ALPRAZOLAM
     Indication: PROPHYLAXIS
     Route: 048
     Dates: start: 2006

REACTIONS (16)
  - Tooth fracture [Unknown]
  - Laryngitis [Unknown]
  - Memory impairment [Unknown]
  - Crying [Unknown]
  - Impatience [Unknown]
  - Sleep talking [Unknown]
  - Insomnia [Unknown]
  - Tooth disorder [Unknown]
  - Dry mouth [Unknown]
  - Drug ineffective [Unknown]
  - Nightmare [Unknown]
  - Blood pressure decreased [Unknown]
  - Off label use [Unknown]
  - Product use in unapproved indication [Unknown]
  - Pain [Unknown]
  - Heart rate decreased [Unknown]

NARRATIVE: CASE EVENT DATE: 2012
